FAERS Safety Report 5564583-0 (Version None)
Quarter: 2007Q4

REPORT INFORMATION
  Report Type: 
  Country: None (occurrence: None)
  Receive Date: 20071218
  Receipt Date: 20071207
  Transmission Date: 20080405
  Serious: Yes (Hospitalization)
  Sender: FDA-Public Use
  Company Number: IT-WYE-H01605007

PATIENT
  Sex: Female

DRUGS (4)
  1. INDERAL [Suspect]
     Route: 048
     Dates: start: 20070101, end: 20070916
  2. INDERAL [Suspect]
     Route: 048
     Dates: start: 20070922
  3. EUTIROX [Concomitant]
     Indication: HYPOTHYROIDISM
     Route: 048
  4. ENAPREN [Suspect]
     Indication: HYPERTENSION
     Route: 048
     Dates: start: 20070101

REACTIONS (2)
  - SINUS BRADYCARDIA [None]
  - SYNCOPE [None]
